FAERS Safety Report 14582042 (Version 2)
Quarter: 2018Q4

REPORT INFORMATION
  Report Type: Not Available
  Country: FR (occurrence: FR)
  Receive Date: 20180228
  Receipt Date: 20181113
  Transmission Date: 20190204
  Serious: Yes (Other)
  Sender: FDA-Public Use
  Company Number: FR-SYNTHON BV-NL01PV18_46681

PATIENT
  Age: 21 Year
  Sex: Female

DRUGS (3)
  1. DAFALGAN CODEINE [Suspect]
     Active Substance: ACETAMINOPHEN\CODEINE PHOSPHATE
     Dosage: 4 DF, IN TOTAL
     Route: 048
     Dates: start: 20180102, end: 20180102
  2. DOLIPRANE [Suspect]
     Active Substance: ACETAMINOPHEN
     Dosage: 1 DF (1000 MG), QD
     Route: 048
     Dates: start: 20180102, end: 20180102
  3. TAMSULOSIN [Suspect]
     Active Substance: TAMSULOSIN
     Dosage: 4 DF, QD
     Route: 048
     Dates: start: 20180102, end: 20180102

REACTIONS (1)
  - Poisoning deliberate [Recovered/Resolved]

NARRATIVE: CASE EVENT DATE: 20180102
